FAERS Safety Report 5483696-5 (Version None)
Quarter: 2007Q4

REPORT INFORMATION
  Report Type: 
  Country: None (occurrence: None)
  Receive Date: 20071012
  Receipt Date: 20071003
  Transmission Date: 20080405
  Serious: Yes (Hospitalization)
  Sender: FDA-Public Use
  Company Number: FR-AMGEN-US247060

PATIENT
  Age: 67 Year
  Sex: Male

DRUGS (7)
  1. ENBREL [Suspect]
     Indication: RHEUMATOID ARTHRITIS
     Dosage: UNKNOWN
     Route: 058
     Dates: start: 20070702, end: 20070706
  2. ENBREL [Suspect]
     Indication: PSORIASIS
  3. TAHOR [Concomitant]
     Dosage: UNKNOWN
     Route: 048
     Dates: start: 20060615
  4. OMIX [Concomitant]
     Dosage: UNKNOWN
     Route: 048
     Dates: start: 20040615
  5. PLAVIX [Concomitant]
     Dosage: UNKNOWN
     Route: 048
     Dates: start: 20070525
  6. METHOTREXATE [Concomitant]
     Indication: RHEUMATOID ARTHRITIS
     Dosage: 12.5 MG TOTAL WEEKLY
     Route: 048
     Dates: start: 20030615
  7. METHOTREXATE [Concomitant]
     Indication: PSORIASIS

REACTIONS (8)
  - CEREBELLAR SYNDROME [None]
  - DIZZINESS [None]
  - FACIAL PALSY [None]
  - GAIT DISTURBANCE [None]
  - HEADACHE [None]
  - MALAISE [None]
  - PALLOR [None]
  - VISION BLURRED [None]
